FAERS Safety Report 11358732 (Version 1)
Quarter: 2015Q3

REPORT INFORMATION
  Report Type: Spontaneous
  Country: US (occurrence: None)
  Receive Date: 20150716
  Receipt Date: 20150716
  Transmission Date: 20151125
  Serious: Yes (Hospitalization, Other)
  Sender: FDA-Public Use
  Company Number: 2015PROUSA04320

PATIENT
  Age: 59 Year
  Sex: Male
  Weight: 102 kg

DRUGS (15)
  1. PROVENGE [Suspect]
     Active Substance: SIPULEUCEL-T
     Indication: PROSTATE CANCER METASTATIC
     Dosage: 250 ML, SINGLE, INTRAVENOUS
     Route: 042
     Dates: start: 20141204, end: 20141204
  2. LISINOPRIL. [Concomitant]
     Active Substance: LISINOPRIL
  3. SINGULAIR [Concomitant]
     Active Substance: MONTELUKAST SODIUM
  4. CLARITIN [Concomitant]
     Active Substance: LORATADINE
  5. XGEVA [Concomitant]
     Active Substance: DENOSUMAB
  6. VITAMIN D (COLECALCIFEROL) [Concomitant]
  7. LUPRON (LEUPRORELIN ACETATE) [Concomitant]
  8. CHLORTALIDONE [Concomitant]
     Active Substance: CHLORTHALIDONE
  9. OMEPRAZOLE. [Concomitant]
     Active Substance: OMEPRAZOLE
  10. MULTIVITAMIN (VITAMINS NOS) [Concomitant]
     Active Substance: VITAMINS
  11. ATORVASTATIN (ATORVASTATIN CALCIUM) [Concomitant]
  12. ATENOLOL. [Concomitant]
     Active Substance: ATENOLOL
  13. VITAMIN C [Concomitant]
     Active Substance: ASCORBIC ACID
  14. CASODEX [Concomitant]
     Active Substance: BICALUTAMIDE
  15. ALBUTEROL (SALBUTAMOL SULFATE) [Concomitant]

REACTIONS (1)
  - Pulmonary embolism [None]

NARRATIVE: CASE EVENT DATE: 20141220
